FAERS Safety Report 7384931-9 (Version None)
Quarter: 2011Q1

REPORT INFORMATION
  Report Type: 
  Country: None (occurrence: None)
  Receive Date: 20110330
  Receipt Date: 20110325
  Transmission Date: 20110831
  Serious: Yes (Other)
  Sender: FDA-Public Use
  Company Number: JP-PFIZER INC-2011049904

PATIENT
  Sex: Female

DRUGS (6)
  1. SOLANAX [Suspect]
     Dosage: 3 TABLETS DAILY
  2. ZOLOFT [Suspect]
     Dosage: 25 MG, 1X/DAY
     Route: 048
     Dates: end: 20110311
  3. ZOLOFT [Suspect]
     Dosage: 75 MG/DAY
     Route: 048
     Dates: end: 20110311
  4. ZOLOFT [Suspect]
     Dosage: 50 MG/DAY
     Route: 048
  5. DEPAS [Concomitant]
     Dosage: UNK
  6. LENDORMIN [Concomitant]
     Dosage: UNK

REACTIONS (6)
  - GAIT DISTURBANCE [None]
  - BLEPHAROSPASM [None]
  - MUSCLE RIGIDITY [None]
  - CHEST DISCOMFORT [None]
  - DECREASED APPETITE [None]
  - NAUSEA [None]
